FAERS Safety Report 10048466 (Version 1)
Quarter: 2014Q1

REPORT INFORMATION
  Report Type: Spontaneous
  Country: US (occurrence: None)
  Receive Date: 20140306
  Receipt Date: 20140306
  Transmission Date: 20141002
  Serious: Yes (Other)
  Sender: FDA-Public Use
  Company Number: 163-21880-13020905

PATIENT
  Age: 79 Year
  Sex: Female

DRUGS (7)
  1. REVLIMID [Suspect]
     Indication: PLASMA CELL MYELOMA
     Dosage: 21 IN 21 D
     Route: 048
     Dates: start: 20120215
  2. MULTIVITAMINS [Concomitant]
  3. VITAMIN C (ASCORBIC ACID) [Concomitant]
  4. TEMAZEPAM [Concomitant]
  5. GABAPENTIN [Concomitant]
  6. ZOMETA (ZOLEDRONIC ACID) [Concomitant]
  7. ARANESP (DARBEPOETIN ALFA) [Concomitant]

REACTIONS (2)
  - Burning sensation [None]
  - Adverse drug reaction [None]
